FAERS Safety Report 5806807-8 (Version None)
Quarter: 2008Q3

REPORT INFORMATION
  Report Type: 
  Country: None (occurrence: None)
  Receive Date: 20080708
  Receipt Date: 20080627
  Transmission Date: 20090109
  Serious: Yes (Other)
  Sender: FDA-Public Use
  Company Number: 230044M08GBR

PATIENT
  Age: 43 Year
  Sex: Female

DRUGS (5)
  1. REBIF [Suspect]
     Dosage: 8.8 MCG, 3 IN 1 WEEKS, SUBCUTANEOUS
     Route: 058
  2. LEVETIRACETAM [Concomitant]
  3. ESCITALOPRAM [Concomitant]
  4. AMITRIPTYLINE                      /00002201/ [Concomitant]
  5. MODAFINIL [Concomitant]

REACTIONS (1)
  - ANAPHYLACTIC REACTION [None]
